FAERS Safety Report 14599937 (Version 2)
Quarter: 2018Q1

REPORT INFORMATION
  Report Type: Report from Study
  Country: AR (occurrence: AR)
  Receive Date: 20180305
  Receipt Date: 20180327
  Transmission Date: 20180509
  Serious: Yes (Other)
  Sender: FDA-Public Use
  Company Number: AR-TEVA-2018-AR-863942

PATIENT
  Age: 10 Month
  Sex: Male

DRUGS (5)
  1. MELPHALAN HYDROCHLORIDE. [Concomitant]
     Active Substance: MELPHALAN HYDROCHLORIDE
     Indication: RETINOBLASTOMA
     Dosage: DILUTED WITH SODIUM CHLORIDE TO OBTAIN A VOLUME OF 30 CM3 OF SOLUTION. THE INJECTION WAS GIVEN IN...
     Route: 050
  2. CARBOPLATIN. [Suspect]
     Active Substance: CARBOPLATIN
     Indication: RETINOBLASTOMA
     Dosage: DILUTED WITH SODIUM CHLORIDE TO OBTAIN A VOLUME OF 30 CM3 OF SOLUTION. THE INJECTION WAS GIVEN IN...
     Route: 050
  3. HEPARIN [Concomitant]
     Active Substance: HEPARIN SODIUM
     Dosage: 50 IU/KG IN FEMORAL ARTERY
     Route: 013
  4. TOPOTECAN HYDROCHLORIDE. [Concomitant]
     Active Substance: TOPOTECAN HYDROCHLORIDE
     Indication: RETINOBLASTOMA
     Dosage: DILUTED WITH SODIUM CHLORIDE TO OBTAIN A VOLUME OF 30 CM3 OF SOLUTION. THE INJECTION WAS GIVEN IN...
     Route: 050
  5. SALINE [Concomitant]
     Active Substance: SODIUM CHLORIDE
     Indication: VEHICLE SOLUTION USE
     Dosage: CHEMOTHERAPEUTIC DRUG WAS DILUTED WITH SODIUM CHLORIDE TO OBTAIN A VOLUME OF 30 CM3 OF SOLUTION. ...
     Route: 050

REACTIONS (1)
  - Anaphylactic shock [Recovered/Resolved]
